FAERS Safety Report 5586095-0 (Version None)
Quarter: 2008Q1

REPORT INFORMATION
  Report Type: 
  Country: None (occurrence: None)
  Receive Date: 20080104
  Receipt Date: 20071219
  Transmission Date: 20080703
  Serious: Yes (Hospitalization)
  Sender: FDA-Public Use
  Company Number: 8028807

PATIENT
  Age: 67 Year
  Sex: Male
  Weight: 88.9 kg

DRUGS (3)
  1. KEPPRA [Suspect]
  2. TEMODAR [Suspect]
     Indication: ASTROCYTOMA, LOW GRADE
     Dosage: 320 MG /D, PO
     Route: 048
     Dates: start: 20071031, end: 20071104
  3. TEMODAR [Suspect]
     Indication: ASTROCYTOMA, LOW GRADE
     Dosage: PO
     Route: 048
     Dates: start: 20060926

REACTIONS (7)
  - BLOOD CREATINE PHOSPHOKINASE INCREASED [None]
  - CONFUSIONAL STATE [None]
  - CONVULSION [None]
  - MYOGLOBIN BLOOD INCREASED [None]
  - PLATELET COUNT DECREASED [None]
  - PNEUMONIA ASPIRATION [None]
  - VOMITING [None]
